FAERS Safety Report 25457832 (Version 1)
Quarter: 2025Q2

REPORT INFORMATION
  Report Type: Spontaneous
  Country: US (occurrence: US)
  Receive Date: 20250619
  Receipt Date: 20250619
  Transmission Date: 20250717
  Serious: Yes (Hospitalization, Other)
  Sender: RECORDATI
  Company Number: US-ORPHANEU-2020003472

PATIENT
  Sex: Female

DRUGS (2)
  1. SIGNIFOR LAR [Suspect]
     Active Substance: PASIREOTIDE PAMOATE
     Indication: Gigantism
     Dosage: 40 MILLIGRAM MONTHLY (INJECTION)
     Dates: start: 20180911
  2. SIGNIFOR LAR [Suspect]
     Active Substance: PASIREOTIDE PAMOATE
     Indication: Acromegaly

REACTIONS (14)
  - Cardiac failure congestive [Unknown]
  - End stage renal disease [Not Recovered/Not Resolved]
  - Haemorrhoidal haemorrhage [Unknown]
  - Sciatica [Unknown]
  - COVID-19 [Unknown]
  - Blood pressure increased [Recovering/Resolving]
  - Joint swelling [Unknown]
  - Depression [Unknown]
  - Arthralgia [Unknown]
  - Myalgia [Unknown]
  - Pain [Unknown]
  - Heart rate decreased [Unknown]
  - Blood glucose increased [Recovered/Resolved]
  - Blood glucose increased [Not Recovered/Not Resolved]

NARRATIVE: CASE EVENT DATE: 20200101
